FAERS Safety Report 4925291-X (Version None)
Quarter: 2006Q1

REPORT INFORMATION
  Report Type: 
  Country: None (occurrence: None)
  Receive Date: 20060228
  Receipt Date: 20060117
  Transmission Date: 20060701
  Serious: Yes (Other)
  Sender: FDA-Public Use
  Company Number: GB-GLAXOSMITHKLINE-B0406821A

PATIENT
  Age: 38 Year
  Sex: Female

DRUGS (2)
  1. SEROXAT [Suspect]
     Indication: DRUG USE FOR UNKNOWN INDICATION
     Dosage: 20MG PER DAY
     Route: 048
     Dates: start: 20000101
  2. ALCOHOL [Concomitant]
     Route: 065

REACTIONS (3)
  - AGGRESSION [None]
  - DRUG INTERACTION [None]
  - IMPULSIVE BEHAVIOUR [None]
